FAERS Safety Report 8796938 (Version 1)
Quarter: 2012Q4

REPORT INFORMATION
  Report Type: 
  Country: US (occurrence: US)
  Receive Date: 20120919
  Receipt Date: 20120919
  Transmission Date: 20130627
  Serious: No
  Sender: FDA-Public Use
  Company Number: US-ASTRAZENECA-2012SE71665

PATIENT
  Age: 60 Year
  Sex: Female

DRUGS (6)
  1. PRILOSEC [Suspect]
     Dosage: TWO TIMES A DAY
     Route: 048
  2. NEXIUM [Concomitant]
  3. TUMS [Concomitant]
  4. RANITIDINE [Concomitant]
  5. DEXILANT [Concomitant]
  6. PROTONIX [Concomitant]

REACTIONS (2)
  - Drug ineffective [Unknown]
  - Off label use [Unknown]
